FAERS Safety Report 11152702 (Version 1)
Quarter: 2015Q2

REPORT INFORMATION
  Report Type: Spontaneous
  Country: US (occurrence: US)
  Receive Date: 20150601
  Receipt Date: 20150601
  Transmission Date: 20150821
  Serious: Yes (Hospitalization)
  Sender: FDA-Public Use
  Company Number: US-TEVA-565095USA

PATIENT
  Sex: Female

DRUGS (11)
  1. CRESTOR [Concomitant]
     Active Substance: ROSUVASTATIN CALCIUM
  2. LYRICA [Concomitant]
     Active Substance: PREGABALIN
     Indication: TYPE 2 DIABETES MELLITUS
  3. LYRICA [Concomitant]
     Active Substance: PREGABALIN
     Indication: NEUROPATHY PERIPHERAL
     Dosage: 2-3 TIMES PER DAY
  4. CLONAZEPAM. [Suspect]
     Active Substance: CLONAZEPAM
     Indication: TYPE 2 DIABETES MELLITUS
  5. RANEXA [Concomitant]
     Active Substance: RANOLAZINE
  6. ASPIRIN. [Concomitant]
     Active Substance: ASPIRIN
  7. METFORMIN [Concomitant]
     Active Substance: METFORMIN HYDROCHLORIDE
  8. CLONAZEPAM. [Suspect]
     Active Substance: CLONAZEPAM
     Indication: NEUROPATHY PERIPHERAL
     Dates: start: 2010
  9. PLAVIX [Concomitant]
     Active Substance: CLOPIDOGREL BISULFATE
     Dates: start: 2011
  10. IMDUR [Concomitant]
     Active Substance: ISOSORBIDE MONONITRATE
     Dates: start: 2011
  11. DIOVAN [Concomitant]
     Active Substance: VALSARTAN
     Dates: end: 2014

REACTIONS (3)
  - Off label use [Unknown]
  - Arterial occlusive disease [Recovered/Resolved]
  - Product use issue [Unknown]

NARRATIVE: CASE EVENT DATE: 2011
